FAERS Safety Report 6022003-6 (Version None)
Quarter: 2008Q4

REPORT INFORMATION
  Report Type: 
  Country: None (occurrence: None)
  Receive Date: 20081229
  Receipt Date: 20081222
  Transmission Date: 20090506
  Serious: Yes (Hospitalization, Other)
  Sender: FDA-Public Use
  Company Number: ES-ASTRAZENECA-2008AC03235

PATIENT
  Age: 87 Year
  Sex: Male

DRUGS (2)
  1. CASODEX [Suspect]
     Indication: PROSTATE CANCER
     Route: 048
     Dates: start: 20030101
  2. PROCRIN [Suspect]
     Indication: PROSTATE CANCER
     Route: 030
     Dates: start: 20030101

REACTIONS (1)
  - ACUTE CORONARY SYNDROME [None]
